FAERS Safety Report 17345357 (Version 1)
Quarter: 2020Q1

REPORT INFORMATION
  Report Type: Spontaneous
  Country: US (occurrence: US)
  Receive Date: 20200129
  Receipt Date: 20200129
  Transmission Date: 20200409
  Serious: No
  Sender: FDA-Public Use
  Company Number: US-ALLERGAN-1948560US

PATIENT
  Age: 53 Year
  Sex: Female
  Weight: 82.54 kg

DRUGS (2)
  1. BOTOX [Suspect]
     Active Substance: ONABOTULINUMTOXINA
     Indication: MIGRAINE
     Dosage: 145 UNITS, SINGLE
     Dates: start: 20191028, end: 20191028
  2. VORTIOXETINE. [Concomitant]
     Active Substance: VORTIOXETINE
     Indication: ANXIETY
     Dosage: 10 MG, QD

REACTIONS (1)
  - Brow ptosis [Not Recovered/Not Resolved]

NARRATIVE: CASE EVENT DATE: 20191116
